FAERS Safety Report 13387698 (Version 1)
Quarter: 2017Q1

REPORT INFORMATION
  Report Type: Spontaneous
  Country: GB (occurrence: GB)
  Receive Date: 20170330
  Receipt Date: 20170330
  Transmission Date: 20170429
  Serious: Yes (Other)
  Sender: FDA-Public Use
  Company Number: GB-ASTRAZENECA-2017SE30886

PATIENT
  Age: 65 Year
  Sex: Female

DRUGS (3)
  1. ANASTROZOLE. [Suspect]
     Active Substance: ANASTROZOLE
     Dosage: 1 MG, UNKNOWN, TEVA
     Route: 048
     Dates: start: 2013, end: 201701
  2. ANASTROZOLE. [Suspect]
     Active Substance: ANASTROZOLE
     Route: 048
  3. ANASTROZOLE. [Suspect]
     Active Substance: ANASTROZOLE
     Dosage: ACCORD HEALTHCARE ANASTROZOLE
     Route: 065

REACTIONS (19)
  - Lethargy [Unknown]
  - Hiatus hernia [Unknown]
  - Oesophagitis [Unknown]
  - Muscular weakness [Not Recovered/Not Resolved]
  - Mood swings [Unknown]
  - Gastrooesophageal reflux disease [Unknown]
  - Myalgia [Not Recovered/Not Resolved]
  - Memory impairment [Unknown]
  - Palpitations [Unknown]
  - Nausea [Not Recovered/Not Resolved]
  - Adverse event [Unknown]
  - Sleep disorder [Unknown]
  - Bone pain [Unknown]
  - Dupuytren^s contracture [Not Recovered/Not Resolved]
  - Headache [Unknown]
  - Depression [Unknown]
  - Dry skin [Unknown]
  - Cataract [Unknown]
  - Paraesthesia [Not Recovered/Not Resolved]
